FAERS Safety Report 18850890 (Version 1)
Quarter: 2021Q1

REPORT INFORMATION
  Report Type: Spontaneous
  Country: JP (occurrence: JP)
  Receive Date: 20210205
  Receipt Date: 20210205
  Transmission Date: 20210420
  Serious: Yes (Other)
  Sender: FDA-Public Use
  Company Number: JP-ABBVIE-21P-087-3760643-00

PATIENT
  Sex: Female

DRUGS (1)
  1. LEUPLIN [Suspect]
     Active Substance: LEUPROLIDE ACETATE
     Indication: UTERINE LEIOMYOMA
     Route: 065

REACTIONS (13)
  - Bone pain [Unknown]
  - Emotional distress [Unknown]
  - Pain in extremity [Unknown]
  - Arthralgia [Unknown]
  - Back pain [Unknown]
  - Vision blurred [Unknown]
  - Insomnia [Unknown]
  - Visual acuity reduced [Unknown]
  - Musculoskeletal stiffness [Unknown]
  - Pain [Unknown]
  - Physical deconditioning [Unknown]
  - Product prescribing error [Unknown]
  - Depression [Unknown]
